FAERS Safety Report 9312609 (Version 2)
Quarter: 2013Q2

REPORT INFORMATION
  Report Type: Spontaneous
  Country: CN (occurrence: CN)
  Receive Date: 20130528
  Receipt Date: 20130603
  Transmission Date: 20140414
  Serious: Yes (Life-Threatening)
  Sender: FDA-Public Use
  Company Number: CN-GLAXOSMITHKLINE-B0893532A

PATIENT
  Age: 65 Year
  Sex: Male

DRUGS (3)
  1. CEFUROXIME SODIUM [Suspect]
     Indication: BRONCHITIS
     Dosage: 3G PER DAY
     Route: 042
  2. 5% GLUCOSE SOLUTION [Concomitant]
     Dosage: 250ML PER DAY
     Route: 042
  3. CEFOTAXIME SODIUM [Concomitant]
     Indication: PYREXIA

REACTIONS (7)
  - Anaphylactic shock [Recovered/Resolved]
  - Dizziness [Unknown]
  - Yellow skin [Unknown]
  - Pallor [Unknown]
  - Hyperhidrosis [Unknown]
  - Tremor [Unknown]
  - Feeling jittery [Unknown]
